FAERS Safety Report 9212768 (Version 1)
Quarter: 2013Q1

REPORT INFORMATION
  Report Type: Spontaneous
  Country: US (occurrence: None)
  Receive Date: 20120824
  Receipt Date: 20120824
  Transmission Date: 20140127
  Serious: Yes (Hospitalization)
  Sender: FDA-Public Use
  Company Number: A-US2011-52533

PATIENT
  Age: 56 Year
  Sex: Male

DRUGS (3)
  1. VELETRI [Suspect]
     Indication: PULMONARY ARTERIAL HYPERTENSION
     Dosage: 14 NG/KG, PER MIN, INTRAVENOUS
     Route: 042
     Dates: start: 20110630
  2. ADCIRCA (TADALAFIL) [Concomitant]
  3. COUMADIN (WARFARIN SODIUM) [Concomitant]

REACTIONS (3)
  - Headache [None]
  - Nausea [None]
  - Chest pain [None]
